FAERS Safety Report 12508295 (Version 1)
Quarter: 2016Q2

REPORT INFORMATION
  Report Type: Spontaneous
  Country: CA (occurrence: CA)
  Receive Date: 20160629
  Receipt Date: 20160629
  Transmission Date: 20160815
  Serious: Yes (Hospitalization, Other)
  Sender: FDA-Public Use
  Company Number: CA-GLAXOSMITHKLINE-CA2015GSK139770

PATIENT
  Sex: Female

DRUGS (7)
  1. BENLYSTA [Suspect]
     Active Substance: BELIMUMAB
     Indication: SYSTEMIC LUPUS ERYTHEMATOSUS
     Dosage: 900 MG, UNK
     Dates: start: 20080328
  2. CHLOROQUINE PHOSPHATE. [Suspect]
     Active Substance: CHLOROQUINE PHOSPHATE
     Indication: PRODUCT USED FOR UNKNOWN INDICATION
  3. BENLYSTA [Suspect]
     Active Substance: BELIMUMAB
     Dosage: 900 UNK, UNK
  4. BENLYSTA [Suspect]
     Active Substance: BELIMUMAB
     Dosage: 900 MG, UNK
  5. BENLYSTA [Suspect]
     Active Substance: BELIMUMAB
     Dosage: 900 UNK, UNK
  6. PLAQUENIL [Suspect]
     Active Substance: HYDROXYCHLOROQUINE SULFATE
     Indication: PRODUCT USED FOR UNKNOWN INDICATION
  7. METHOTREXATE [Suspect]
     Active Substance: METHOTREXATE
     Indication: PRODUCT USED FOR UNKNOWN INDICATION

REACTIONS (11)
  - H1N1 influenza [Unknown]
  - Pneumonia [Unknown]
  - Tooth extraction [Recovered/Resolved]
  - Bronchitis [Not Recovered/Not Resolved]
  - Palpitations [Recovering/Resolving]
  - Condition aggravated [Not Recovered/Not Resolved]
  - Hepatic enzyme increased [Not Recovered/Not Resolved]
  - Diverticulitis [Unknown]
  - Hepatomegaly [Not Recovered/Not Resolved]
  - Tooth infection [Not Recovered/Not Resolved]
  - Renal disorder [Not Recovered/Not Resolved]
